FAERS Safety Report 15454609 (Version 1)
Quarter: 2018Q4

REPORT INFORMATION
  Report Type: Spontaneous
  Country: US (occurrence: US)
  Receive Date: 20181002
  Receipt Date: 20181002
  Transmission Date: 20190204
  Serious: Yes (Hospitalization)
  Sender: FDA-Public Use
  Company Number: US-TEVA-2018-US-959755

PATIENT
  Age: 10 Year
  Sex: Male

DRUGS (2)
  1. FUROSEMIDE. [Suspect]
     Active Substance: FUROSEMIDE
     Dosage: THE BOY INGESTED 6 TABLETS OF 40MG
     Route: 048
  2. COLCHICINE. [Suspect]
     Active Substance: COLCHICINE
     Dosage: THE BOY INGESTED 8 TABLETS OF 0.6MG
     Route: 048

REACTIONS (8)
  - Sinus arrhythmia [Recovered/Resolved]
  - Accidental exposure to product by child [Unknown]
  - Gastrointestinal disorder [Recovered/Resolved]
  - Accidental exposure to product by child [Recovered/Resolved]
  - Atrioventricular block second degree [Recovered/Resolved]
  - Dizziness [Recovered/Resolved]
  - Toxicity to various agents [Recovered/Resolved]
  - Electrolyte imbalance [Recovered/Resolved]
